FAERS Safety Report 20574185 (Version 2)
Quarter: 2022Q1

REPORT INFORMATION
  Report Type: Spontaneous
  Country: GB (occurrence: GB)
  Receive Date: 20220309
  Receipt Date: 20220322
  Transmission Date: 20220423
  Serious: Yes (Disabling, Other)
  Sender: FDA-Public Use
  Company Number: GB-MHRA-MED-202202231814416020-2WJK6

PATIENT
  Age: 25 Year
  Sex: Male
  Weight: 54 kg

DRUGS (5)
  1. HYDROCORTISONE SODIUM SUCCINATE [Suspect]
     Active Substance: HYDROCORTISONE SODIUM SUCCINATE
     Dosage: UNK
  2. BETAMETHASONE [Suspect]
     Active Substance: BETAMETHASONE
     Dosage: UNK
  3. CLOBETASOL [Suspect]
     Active Substance: CLOBETASOL
     Dosage: UNK
  4. EUMOVATE [Suspect]
     Active Substance: CLOBETASONE BUTYRATE
     Dosage: UNK
  5. MOMETASONE [Suspect]
     Active Substance: MOMETASONE
     Dosage: UNK

REACTIONS (6)
  - Skin burning sensation [Recovering/Resolving]
  - Rash pruritic [Not Recovered/Not Resolved]
  - Pyrexia [Not Recovered/Not Resolved]
  - Skin exfoliation [Not Recovered/Not Resolved]
  - Skin wrinkling [Not Recovered/Not Resolved]
  - Product communication issue [Unknown]
